FAERS Safety Report 5473316-8 (Version None)
Quarter: 2007Q4

REPORT INFORMATION
  Report Type: 
  Country: None (occurrence: None)
  Receive Date: 20071001
  Receipt Date: 20070920
  Transmission Date: 20080405
  Serious: Yes (Hospitalization)
  Sender: FDA-Public Use
  Company Number: US-JNJFOC-20070904223

PATIENT
  Age: 60 Year
  Sex: Male

DRUGS (19)
  1. PREZISTA [Suspect]
     Indication: HIV INFECTION
     Route: 048
  2. MK0518 [Suspect]
     Route: 048
  3. MK0518 [Suspect]
     Indication: HIV INFECTION
     Route: 048
  4. RITONAVIR [Suspect]
     Route: 048
  5. RITONAVIR [Suspect]
     Indication: HIV INFECTION
     Route: 048
  6. TRUVADA [Suspect]
     Indication: HIV INFECTION
     Route: 048
  7. COREG [Concomitant]
     Route: 065
  8. CARTIA XT [Concomitant]
     Route: 065
  9. FUROSEMIDE [Concomitant]
     Route: 065
  10. INDOMETHACIN [Concomitant]
     Route: 065
  11. LISINOPRIL [Concomitant]
     Route: 065
  12. METAMUCIL [Concomitant]
     Route: 065
  13. CIALIS [Concomitant]
     Route: 065
  14. TRAZODONE HYDROCHLORIDE [Concomitant]
     Route: 065
  15. WARFARIN SODIUM [Concomitant]
     Route: 065
  16. VICODIN [Concomitant]
     Route: 065
  17. ASPIRIN [Concomitant]
  18. ATROPINE SULFATE/DIPHENOXYLATE HYDROCHLORIDE [Concomitant]
     Route: 065
  19. ALLOPURINOL [Concomitant]
     Route: 065

REACTIONS (2)
  - LEFT VENTRICULAR DYSFUNCTION [None]
  - MITRAL VALVE INCOMPETENCE [None]
